FAERS Safety Report 8557152-1 (Version None)
Quarter: 2012Q3

REPORT INFORMATION
  Report Type: 
  Country: None (occurrence: None)
  Receive Date: 20120801
  Receipt Date: 20120725
  Transmission Date: 20120928
  Serious: Yes (Hospitalization, Other)
  Sender: FDA-Public Use
  Company Number: US-PFIZER INC-2012167057

PATIENT
  Sex: Male

DRUGS (5)
  1. GLUCOTROL XL [Suspect]
     Dosage: UNK
  2. LYRICA [Suspect]
     Indication: VEIN DISORDER
  3. PROTONIX [Suspect]
     Dosage: UNK
  4. LIPITOR [Suspect]
     Dosage: UNK
  5. LYRICA [Suspect]
     Indication: MUSCLE INJURY
     Dosage: 50 MG, 3X/DAY
     Route: 048
     Dates: start: 20100101

REACTIONS (1)
  - CARDIAC DISORDER [None]
